FAERS Safety Report 9837222 (Version 1)
Quarter: 2013Q4

REPORT INFORMATION
  Report Type: Spontaneous
  Country: US (occurrence: None)
  Receive Date: 20131205
  Receipt Date: 20131205
  Transmission Date: 20140711
  Serious: Yes (Hospitalization, Other)
  Sender: FDA-Public Use
  Company Number: 163-POMAL-13100907

PATIENT
  Age: 60 Year
  Sex: Female

DRUGS (2)
  1. POMALYST (POMALIDOMIDE) (2 MILLIGRAM, CAPSULES) [Suspect]
     Indication: PLASMA CELL MYELOMA
     Dosage: 21 IN 28 D
     Route: 048
     Dates: start: 20130805, end: 20130820
  2. MEPRON [Concomitant]

REACTIONS (3)
  - Febrile neutropenia [None]
  - Pancytopenia [None]
  - Renal failure acute [None]
